FAERS Safety Report 11160023 (Version 1)
Quarter: 2015Q2

REPORT INFORMATION
  Report Type: Spontaneous
  Country: US (occurrence: US)
  Receive Date: 20150603
  Receipt Date: 20150603
  Transmission Date: 20150821
  Serious: No
  Sender: FDA-Public Use
  Company Number: US-GLAXOSMITHKLINE-US2015GSK063121

PATIENT
  Age: 69 Year
  Sex: Male
  Weight: 87.53 kg

DRUGS (6)
  1. CARVEDILOL. [Suspect]
     Active Substance: CARVEDILOL
     Dosage: 3.125 MG, BID
     Dates: start: 20150324
  2. LOSARTAN POTASSIUM TABLET [Suspect]
     Active Substance: LOSARTAN POTASSIUM
     Indication: MYOCARDIAL INFARCTION
     Dosage: 25 MG, QD
     Route: 048
     Dates: start: 20150323, end: 20150408
  3. BRILINTA [Concomitant]
     Active Substance: TICAGRELOR
  4. LOVASTATIN. [Concomitant]
     Active Substance: LOVASTATIN
  5. CARVEDILOL. [Suspect]
     Active Substance: CARVEDILOL
     Indication: PRODUCT USED FOR UNKNOWN INDICATION
     Dosage: 6.25 MG, BID
     Dates: start: 20150323
  6. ASPIRIN (BABY) [Concomitant]

REACTIONS (6)
  - Nausea [Recovering/Resolving]
  - Feeling abnormal [Recovering/Resolving]
  - Drug intolerance [Recovering/Resolving]
  - Treatment noncompliance [Unknown]
  - Headache [Recovering/Resolving]
  - Vision blurred [Recovering/Resolving]

NARRATIVE: CASE EVENT DATE: 20150324
